FAERS Safety Report 6924584-4 (Version None)
Quarter: 2010Q3

REPORT INFORMATION
  Report Type: 
  Country: None (occurrence: None)
  Receive Date: 20100816
  Receipt Date: 20100802
  Transmission Date: 20110219
  Serious: Yes (Other)
  Sender: FDA-Public Use
  Company Number: PHFR2010GB02031

PATIENT
  Sex: Male

DRUGS (1)
  1. NEORAL [Suspect]

REACTIONS (1)
  - INFERTILITY MALE [None]
